FAERS Safety Report 18852660 (Version 1)
Quarter: 2021Q1

REPORT INFORMATION
  Report Type: Spontaneous
  Country: DE (occurrence: DE)
  Receive Date: 20210205
  Receipt Date: 20210205
  Transmission Date: 20210420
  Serious: Yes (Other)
  Sender: FDA-Public Use
  Company Number: DE-TEVA-2021-DE-1876373

PATIENT
  Age: 57 Year
  Sex: Female

DRUGS (1)
  1. LETROZOL RATIOPHARM 2,5MG FILMTABLETTEN [Suspect]
     Active Substance: LETROZOLE
     Indication: BREAST CANCER RECURRENT
     Dosage: 2.5 MILLIGRAM DAILY; IN THE MORNING
     Route: 048
     Dates: start: 201909

REACTIONS (1)
  - Low density lipoprotein increased [Not Recovered/Not Resolved]

NARRATIVE: CASE EVENT DATE: 201909
